FAERS Safety Report 5357563-1 (Version None)
Quarter: 2007Q2

REPORT INFORMATION
  Report Type: 
  Country: None (occurrence: None)
  Receive Date: 20070530
  Receipt Date: 20070321
  Transmission Date: 20071010
  Serious: Yes (Other)
  Sender: FDA-Public Use
  Company Number: USA031051323

PATIENT
  Age: 32 Year
  Sex: Male
  Weight: 95.5 kg

DRUGS (4)
  1. ZYPREXA [Suspect]
     Indication: BIPOLAR DISORDER
     Dosage: 15 MG, EACH EVENING, ORAL
     Route: 048
     Dates: start: 20030318
  2. XANAX [Concomitant]
  3. ROXICODONE [Concomitant]
  4. SOMA [Concomitant]

REACTIONS (2)
  - PANCREATITIS [None]
  - WEIGHT INCREASED [None]
